FAERS Safety Report 18434073 (Version 7)
Quarter: 2023Q1

REPORT INFORMATION
  Report Type: Report from Study
  Country: US (occurrence: US)
  Receive Date: 20201027
  Receipt Date: 20230210
  Transmission Date: 20230417
  Serious: Yes (Other)
  Sender: FDA-Public Use
  Company Number: US-SHIRE-US202025756

PATIENT
  Age: 65 Year
  Sex: Female

DRUGS (1)
  1. HUMAN IMMUNOGLOBULIN G [Suspect]
     Active Substance: HUMAN IMMUNOGLOBULIN G
     Indication: Primary immunodeficiency syndrome
     Dosage: 5 GRAM, 1/WEEK
     Route: 065

REACTIONS (19)
  - COVID-19 [Unknown]
  - Haemorrhage [Unknown]
  - Urticaria [Unknown]
  - Pain in extremity [Unknown]
  - Peripheral swelling [Unknown]
  - Scar [Unknown]
  - Otorrhoea [Unknown]
  - Contusion [Unknown]
  - Feeling abnormal [Recovering/Resolving]
  - Somnolence [Unknown]
  - Abdominal distension [Recovering/Resolving]
  - Infusion site pain [Recovering/Resolving]
  - Infusion site haemorrhage [Unknown]
  - Weight decreased [Unknown]
  - Gastrointestinal disorder [Unknown]
  - Multiple allergies [Unknown]
  - Ear pain [Recovering/Resolving]
  - Syringe issue [Unknown]
  - Product administration error [Unknown]

NARRATIVE: CASE EVENT DATE: 20200930
